FAERS Safety Report 17676848 (Version 1)
Quarter: 2020Q2

REPORT INFORMATION
  Report Type: Spontaneous
  Country: US (occurrence: US)
  Receive Date: 20200416
  Receipt Date: 20200416
  Transmission Date: 20200714
  Serious: No
  Sender: FDA-Public Use
  Company Number: US-BAYER-2020-063220

PATIENT
  Age: 75 Year
  Sex: Female

DRUGS (7)
  1. CORICIDIN HBP MAXIMUM STRENGTH FLU [Suspect]
     Active Substance: ACETAMINOPHEN\CHLORPHENIRAMINE MALEATE\DEXTROMETHORPHAN HYDROBROMIDE
     Indication: MULTIPLE ALLERGIES
     Dosage: 1 OR HALF TABLET
     Route: 048
  2. CORICIDIN HBP MAXIMUM STRENGTH FLU [Suspect]
     Active Substance: ACETAMINOPHEN\CHLORPHENIRAMINE MALEATE\DEXTROMETHORPHAN HYDROBROMIDE
     Indication: HEADACHE
  3. CORICIDIN HBP MAXIMUM STRENGTH FLU [Suspect]
     Active Substance: ACETAMINOPHEN\CHLORPHENIRAMINE MALEATE\DEXTROMETHORPHAN HYDROBROMIDE
     Indication: UPPER-AIRWAY COUGH SYNDROME
  4. ZYRTEC [LEVOCABASTINE HYDROCHLORIDE] [Suspect]
     Active Substance: LEVOCABASTINE HYDROCHLORIDE
  5. MUCINEX [Suspect]
     Active Substance: GUAIFENESIN
  6. CLARITIN [Suspect]
     Active Substance: LORATADINE
  7. LISINOPRIL. [Concomitant]
     Active Substance: LISINOPRIL

REACTIONS (3)
  - Blood pressure increased [Unknown]
  - Somnolence [Unknown]
  - Product use in unapproved indication [Unknown]
